FAERS Safety Report 5976553-9 (Version None)
Quarter: 2008Q4

REPORT INFORMATION
  Report Type: 
  Country: None (occurrence: None)
  Receive Date: 20081125
  Receipt Date: 20081113
  Transmission Date: 20090506
  Serious: Yes (Hospitalization)
  Sender: FDA-Public Use
  Company Number: IPS_01354_2008

PATIENT
  Sex: Female

DRUGS (1)
  1. APO-GO (APO-GO PUMP - APOMORPHINE HYDROCHLORIDE) (NOT SPECIFIED) [Suspect]
     Indication: DRUG USE FOR UNKNOWN INDICATION
     Dosage: DF, FOR UNKNOWN SUBCUTANEOUS
     Route: 058

REACTIONS (5)
  - ABSCESS [None]
  - ABSCESS LIMB [None]
  - NODULE [None]
  - NODULE ON EXTREMITY [None]
  - RASH [None]
